FAERS Safety Report 8119159-8 (Version None)
Quarter: 2012Q1

REPORT INFORMATION
  Report Type: 
  Country: None (occurrence: None)
  Receive Date: 20120207
  Receipt Date: 20120207
  Transmission Date: 20120608
  Serious: Yes (Other)
  Sender: FDA-Public Use
  Company Number: None

PATIENT
  Age: 68 Year
  Sex: Female
  Weight: 44.452 kg

DRUGS (1)
  1. TIMOLOL MALEATE [Suspect]
     Indication: GLAUCOMA
     Dosage: 1 DROP IN EACH EYE
     Dates: start: 20120126, end: 20120202

REACTIONS (4)
  - EYE PAIN [None]
  - PRODUCT SUBSTITUTION ISSUE [None]
  - BLEPHARITIS [None]
  - EYE IRRITATION [None]
